FAERS Safety Report 7953537-2 (Version None)
Quarter: 2011Q4

REPORT INFORMATION
  Report Type: 
  Country: None (occurrence: None)
  Receive Date: 20111202
  Receipt Date: 20111129
  Transmission Date: 20120403
  Serious: Yes (Other)
  Sender: FDA-Public Use
  Company Number: BR-PFIZER INC-2011292067

PATIENT
  Age: 30 Year
  Sex: Female
  Weight: 58.5 kg

DRUGS (5)
  1. VARENICLINE TARTRATE [Suspect]
     Indication: TOBACCO USER
     Dosage: UNK
     Dates: start: 20111123, end: 20111101
  2. METFORMIN HYDROCHLORIDE [Concomitant]
     Indication: POLYCYSTIC OVARIES
     Dosage: UNK
     Dates: start: 20111001
  3. OMEPRAZOLE [Concomitant]
     Indication: ABDOMINAL DISCOMFORT
     Dosage: UNK
     Dates: start: 20080101
  4. VARENICLINE TARTRATE [Suspect]
     Dosage: 0.5 MG, 2X/DAY
     Route: 048
     Dates: start: 20111101
  5. SELENE (CYPROTERONE ACETATE/ETHINYLESTRADIOL) [Concomitant]
     Indication: CONTRACEPTIVE CAP
     Dosage: UNK
     Dates: start: 20090101

REACTIONS (7)
  - FEELING ABNORMAL [None]
  - MAJOR DEPRESSION [None]
  - SOMNOLENCE [None]
  - FATIGUE [None]
  - DIZZINESS [None]
  - ABNORMAL DREAMS [None]
  - NAUSEA [None]
